FAERS Safety Report 5705656-9 (Version None)
Quarter: 2008Q2

REPORT INFORMATION
  Report Type: 
  Country: None (occurrence: None)
  Receive Date: 20080415
  Receipt Date: 20080404
  Transmission Date: 20081010
  Serious: Yes (Hospitalization)
  Sender: FDA-Public Use
  Company Number: US-JNJFOC-20050900692

PATIENT
  Sex: Female
  Weight: 70 kg

DRUGS (13)
  1. TMC114 [Suspect]
     Route: 048
     Dates: start: 20050317, end: 20050901
  2. TMC114 [Suspect]
     Indication: HIV INFECTION
     Route: 048
     Dates: start: 20050317, end: 20050901
  3. RITONAVIR [Suspect]
     Indication: HIV INFECTION
     Route: 048
     Dates: start: 20050317, end: 20050901
  4. DIDANOSINE [Concomitant]
     Indication: HIV INFECTION
     Route: 048
     Dates: start: 20050317, end: 20050901
  5. LAMIVUDINE [Concomitant]
     Indication: HIV INFECTION
     Route: 048
     Dates: start: 20050317
  6. ATIVAN [Concomitant]
     Route: 048
  7. ATIVAN [Concomitant]
     Indication: ANXIETY
     Dosage: STARTED PRE TRIAL
     Route: 048
  8. LEXAPRO [Concomitant]
     Indication: DEPRESSION
     Dosage: STARTED PRE TRIAL
     Route: 048
  9. LEVOXYL [Concomitant]
     Indication: HYPOTHYROIDISM
     Dosage: STARTED PRE TRIAL
     Route: 048
  10. BACTRIM [Concomitant]
     Indication: ANTIFUNGAL PROPHYLAXIS
     Dosage: 1 DOSE = 1 TABLET
     Route: 048
     Dates: start: 20050217
  11. LISINOPRIL [Concomitant]
     Route: 048
     Dates: start: 20050528
  12. LISINOPRIL [Concomitant]
     Indication: HYPERTENSION
     Route: 048
     Dates: start: 20050528
  13. ALBUTEROL [Concomitant]
     Indication: DYSPNOEA
     Route: 055

REACTIONS (2)
  - METABOLIC ACIDOSIS [None]
  - TYPE 2 DIABETES MELLITUS [None]
